FAERS Safety Report 4956376-X (Version None)
Quarter: 2006Q1

REPORT INFORMATION
  Report Type: 
  Country: None (occurrence: None)
  Receive Date: 20060328
  Receipt Date: 20060328
  Transmission Date: 20060701
  Serious: No
  Sender: FDA-Public Use
  Company Number: None

PATIENT
  Age: 32 Year
  Sex: Female
  Weight: 53.0709 kg

DRUGS (2)
  1. NECON [Suspect]
     Indication: CONTRACEPTION
     Dosage: ONCE PO QD
     Route: 048
     Dates: start: 20041101
  2. ORTHO-NOVUM 7/7/7-21 [Suspect]
     Dosage: ONCE PO QD
     Route: 048
     Dates: start: 20051201

REACTIONS (2)
  - ABDOMINAL PAIN [None]
  - NAUSEA [None]
